FAERS Safety Report 14021372 (Version 1)
Quarter: 2017Q3

REPORT INFORMATION
  Report Type: Spontaneous
  Country: DK (occurrence: DK)
  Receive Date: 20170928
  Receipt Date: 20170928
  Transmission Date: 20171128
  Serious: Yes (Disabling)
  Sender: FDA-Public Use
  Company Number: PHHY2017DK140046

PATIENT
  Age: 35 Year
  Sex: Female

DRUGS (3)
  1. MYFORTIC [Suspect]
     Active Substance: MYCOPHENOLATE SODIUM
     Dosage: 180 MG, BID
     Route: 065
     Dates: start: 201312
  2. ADPORT [Concomitant]
     Active Substance: TACROLIMUS
     Indication: RENAL TRANSPLANT
     Dosage: 1.5 MG, BID
     Route: 065
     Dates: start: 201312
  3. MYFORTIC [Suspect]
     Active Substance: MYCOPHENOLATE SODIUM
     Indication: RENAL TRANSPLANT
     Dosage: 360 MG, TID
     Route: 065
     Dates: start: 201312

REACTIONS (13)
  - Vitamin D decreased [Not Recovered/Not Resolved]
  - Blood iron decreased [Not Recovered/Not Resolved]
  - Dizziness [Unknown]
  - Blood pressure orthostatic decreased [Not Recovered/Not Resolved]
  - Autoimmune thyroiditis [Unknown]
  - Petechiae [Not Recovered/Not Resolved]
  - Blood magnesium decreased [Unknown]
  - Heart rate abnormal [Unknown]
  - Metabolic disorder [Unknown]
  - Feeling abnormal [Unknown]
  - Blood glucose abnormal [Unknown]
  - Weight increased [Not Recovered/Not Resolved]
  - Limb injury [Not Recovered/Not Resolved]

NARRATIVE: CASE EVENT DATE: 201312
